FAERS Safety Report 10637964 (Version 1)
Quarter: 2014Q4

REPORT INFORMATION
  Report Type: Spontaneous
  Country: US (occurrence: None)
  Receive Date: 20141204
  Receipt Date: 20141204
  Transmission Date: 20150529
  Serious: Yes (Hospitalization)
  Sender: FDA-Public Use
  Company Number: 2014VID00097

PATIENT
  Age: 29 Year
  Sex: Male
  Weight: 58 kg

DRUGS (1)
  1. ACTIMMUNE [Suspect]
     Active Substance: INTERFERON GAMMA-1B
     Indication: CHRONIC GRANULOMATOUS DISEASE
     Route: 058
     Dates: start: 201405

REACTIONS (2)
  - Pneumonia [None]
  - Pyrexia [None]

NARRATIVE: CASE EVENT DATE: 201411
